FAERS Safety Report 7111065-0 (Version None)
Quarter: 2010Q4

REPORT INFORMATION
  Report Type: 
  Country: None (occurrence: None)
  Receive Date: 20101118
  Receipt Date: 20101111
  Transmission Date: 20110411
  Serious: Yes (Hospitalization)
  Sender: FDA-Public Use
  Company Number: DE-TEVA-188022ISR

PATIENT
  Age: 75 Year
  Sex: Female
  Weight: 60 kg

DRUGS (3)
  1. BISOPROLOL FUMARATE AND HYDROCHLOROTHIAZIDE [Suspect]
     Indication: HYPERTENSION
     Dosage: BISOPROLOL 5 MG AND HCT 12.5 MG
     Route: 048
     Dates: start: 20060601, end: 20081201
  2. RAMIPRIL [Suspect]
     Indication: HYPERTENSION
     Route: 048
     Dates: start: 20100601
  3. CITALOPRAM HYDROBROMIDE [Suspect]
     Indication: NORMAL PRESSURE HYDROCEPHALUS
     Route: 048
     Dates: start: 20080201, end: 20081201

REACTIONS (6)
  - BEDRIDDEN [None]
  - DIARRHOEA [None]
  - GENERAL PHYSICAL HEALTH DETERIORATION [None]
  - HYPOKALAEMIA [None]
  - HYPONATRAEMIA [None]
  - MENTAL IMPAIRMENT [None]
